FAERS Safety Report 4390690-4 (Version None)
Quarter: 2004Q2

REPORT INFORMATION
  Report Type: 
  Country: None (occurrence: None)
  Receive Date: 20040630
  Receipt Date: 20040614
  Transmission Date: 20050107
  Serious: Yes (Hospitalization, Other)
  Sender: FDA-Public Use
  Company Number: 2004-0007157

PATIENT
  Age: 47 Year
  Sex: Female
  Weight: 90.7194 kg

DRUGS (8)
  1. EMTRICITABINE (EMTRICITABINE) [Suspect]
     Indication: HIV INFECTION
     Dosage: 200 MG , 1 IN 1 D, ORAL
     Route: 048
     Dates: start: 20031007, end: 20040507
  2. D4T XR (STAVUDINE) [Suspect]
     Indication: HIV INFECTION
     Dosage: 100 MG, 1 IN 1 D, ORAL
     Route: 048
     Dates: start: 20031007, end: 20040507
  3. KALETRA [Suspect]
     Indication: HIV INFECTION
     Dosage: 500 MG , 2 IN 1 D, ORAL
     Route: 048
     Dates: start: 20031007, end: 20040507
  4. TRIMETHOPRIM/SULFATMETHOXAZOLE (BACTRIM) [Concomitant]
  5. RANITIDINE [Concomitant]
  6. THEO-DUR [Concomitant]
  7. ALBUTEROL [Concomitant]
  8. FLOVENT [Concomitant]

REACTIONS (7)
  - DECREASED APPETITE [None]
  - DEHYDRATION [None]
  - DRUG LEVEL BELOW THERAPEUTIC [None]
  - HYPERLACTACIDAEMIA [None]
  - HYPERTHYROIDISM [None]
  - MYALGIA [None]
  - NAUSEA [None]
